FAERS Safety Report 20986894 (Version 1)
Quarter: 2022Q2

REPORT INFORMATION
  Report Type: Spontaneous
  Country: US (occurrence: None)
  Receive Date: 20220617
  Receipt Date: 20220617
  Transmission Date: 20220721
  Serious: Yes (Disabling, Other)
  Sender: FDA-Public Use
  Company Number: None

PATIENT
  Age: 71 Year
  Sex: Female
  Weight: 45.9 kg

DRUGS (4)
  1. TYRVAYA [Suspect]
     Active Substance: VARENICLINE TARTRATE
     Indication: Dry eye
     Dosage: OTHER QUANTITY : 1 SPRAY(S);?FREQUENCY : TWICE A DAY;?OTHER ROUTE : NASAL SPRAY;?
     Route: 050
     Dates: start: 20220615, end: 20220615
  2. ESTRADIOL [Concomitant]
     Active Substance: ESTRADIOL
  3. CALCIUM [Concomitant]
     Active Substance: CALCIUM
  4. VITAMIN D NOS [Concomitant]
     Active Substance: VITAMIN D NOS

REACTIONS (12)
  - Device delivery system issue [None]
  - Oral discomfort [None]
  - Lip blister [None]
  - Swelling face [None]
  - Hypoaesthesia [None]
  - Hypoaesthesia oral [None]
  - Adverse reaction [None]
  - Adverse drug reaction [None]
  - Product communication issue [None]
  - Lip pain [None]
  - Exposure via skin contact [None]
  - Wrong route [None]

NARRATIVE: CASE EVENT DATE: 20220615
